FAERS Safety Report 8905054 (Version 1)
Quarter: 2012Q4

REPORT INFORMATION
  Report Type: 
  Country: PH (occurrence: PH)
  Receive Date: 20121112
  Receipt Date: 20121112
  Transmission Date: 20130627
  Serious: Yes (Hospitalization)
  Sender: FDA-Public Use
  Company Number: PHHY2012PH103624

PATIENT
  Sex: Female

DRUGS (2)
  1. GLIVEC [Suspect]
     Dosage: 600 mg, per day
     Dates: start: 20090731, end: 20100215
  2. GLIVEC [Suspect]
     Dosage: 400 mg, per day
     Route: 048
     Dates: start: 20100215

REACTIONS (1)
  - Calculus ureteric [Unknown]
